FAERS Safety Report 23644849 (Version 1)
Quarter: 2024Q1

REPORT INFORMATION
  Report Type: Spontaneous
  Country: US (occurrence: US)
  Receive Date: 20240318
  Receipt Date: 20240318
  Transmission Date: 20240410
  Serious: No
  Sender: FDA-Public Use
  Company Number: US-Calliditas-2024CAL00425

PATIENT
  Age: 32 Year
  Sex: Female

DRUGS (2)
  1. TARPEYO [Suspect]
     Active Substance: BUDESONIDE
     Indication: Haematuria
     Dosage: 8 MG (4 MG CAPSULES) ONCE DAILY
     Route: 048
     Dates: start: 20230408
  2. FILSPARI [Concomitant]
     Active Substance: SPARSENTAN

REACTIONS (3)
  - Acne [Unknown]
  - Off label use [Unknown]
  - Prescribed underdose [Unknown]
